FAERS Safety Report 8758696 (Version 1)
Quarter: 2012Q4

REPORT INFORMATION
  Report Type: Spontaneous
  Country: US (occurrence: None)
  Receive Date: 20120828
  Receipt Date: 20120828
  Transmission Date: 20130627
  Serious: Yes (Other)
  Sender: FDA-Public Use
  Company Number: None

PATIENT
  Age: 22 Year
  Sex: Male
  Weight: 107 kg

DRUGS (1)
  1. VORICONAZOLE [Suspect]
     Route: 042
     Dates: start: 20120826

REACTIONS (4)
  - Dyspnoea [None]
  - Lip swelling [None]
  - Hyperhidrosis [None]
  - Immediate post-injection reaction [None]
